FAERS Safety Report 6626001-0 (Version None)
Quarter: 2010Q1

REPORT INFORMATION
  Report Type: 
  Country: None (occurrence: None)
  Receive Date: 20100310
  Receipt Date: 20100308
  Transmission Date: 20100710
  Serious: Yes (Death)
  Sender: FDA-Public Use
  Company Number: JP-SANOFI-AVENTIS-2010SA013011

PATIENT
  Age: 62 Year
  Sex: Male

DRUGS (10)
  1. OXALIPLATIN [Suspect]
     Indication: RECTAL CANCER RECURRENT
     Route: 041
     Dates: start: 20080501, end: 20080501
  2. OXALIPLATIN [Suspect]
     Route: 041
  3. AVASTIN [Suspect]
     Indication: RECTAL CANCER
     Route: 041
     Dates: start: 20080501, end: 20080501
  4. AVASTIN [Suspect]
     Route: 041
     Dates: start: 20100101, end: 20100101
  5. 5-FU [Suspect]
     Indication: RECTAL CANCER RECURRENT
     Route: 040
     Dates: start: 20080501, end: 20080501
  6. 5-FU [Suspect]
     Route: 041
     Dates: start: 20080501, end: 20080501
  7. 5-FU [Suspect]
     Route: 040
  8. 5-FU [Suspect]
     Route: 041
  9. CALCIUM LEVOFOLINATE [Suspect]
     Indication: RECTAL CANCER RECURRENT
     Route: 041
     Dates: start: 20080501, end: 20080501
  10. CALCIUM LEVOFOLINATE [Suspect]
     Route: 041

REACTIONS (3)
  - INTESTINAL OBSTRUCTION [None]
  - INTESTINAL PERFORATION [None]
  - PULMONARY FIBROSIS [None]
